FAERS Safety Report 8127533-9 (Version None)
Quarter: 2012Q1

REPORT INFORMATION
  Report Type: 
  Country: None (occurrence: None)
  Receive Date: 20120210
  Receipt Date: 20120131
  Transmission Date: 20120608
  Serious: Yes (Other)
  Sender: FDA-Public Use
  Company Number: DE-ELI_LILLY_AND_COMPANY-DE201201002795

PATIENT
  Age: 62 Year
  Sex: Female

DRUGS (7)
  1. JODID [Concomitant]
     Dosage: 200 MG, UNKNOWN
  2. NEUPRO [Concomitant]
     Dosage: 4 MG, UNK
  3. PANTOPRAZOLE [Concomitant]
     Dosage: 20 MG, UNKNOWN
  4. NIFURANTIN [Concomitant]
     Dosage: 100 MG, UNKNOWN
  5. DULOXETIME HYDROCHLORIDE [Suspect]
     Dosage: UNK, UNKNOWN
     Route: 048
  6. LEVOCOMP [Concomitant]
     Dosage: 2 DF, UNK
  7. VESIKER [Concomitant]
     Dosage: 5 MG, UNKNOWN

REACTIONS (3)
  - FEEDING TUBE COMPLICATION [None]
  - DYSPHAGIA [None]
  - MEDICATION ERROR [None]
